FAERS Safety Report 9061685 (Version 2)
Quarter: 2013Q1

REPORT INFORMATION
  Report Type: Spontaneous
  Country: JP (occurrence: JP)
  Receive Date: 20130204
  Receipt Date: 20130222
  Transmission Date: 20140127
  Serious: Yes (Death)
  Sender: FDA-Public Use
  Company Number: JP-BRISTOL-MYERS SQUIBB COMPANY-17332214

PATIENT
  Age: 47 Year
  Sex: Female

DRUGS (6)
  1. METGLUCO [Suspect]
     Indication: DIABETES MELLITUS
     Dosage: 750MG
     Route: 048
     Dates: start: 20090817
  2. VOGLIBOSE [Concomitant]
     Route: 048
     Dates: start: 20081008
  3. MICARDIS [Concomitant]
     Route: 048
     Dates: start: 20081015
  4. AMARYL [Concomitant]
     Route: 048
     Dates: start: 20081015
  5. FERROMIA [Concomitant]
     Dosage: 2AUG2010-APR2011?JAN2012
     Route: 048
     Dates: start: 20100802
  6. ALANTA [Concomitant]
     Dosage: 2APR2010-APR2011?JAN2012
     Route: 048
     Dates: start: 20100402

REACTIONS (1)
  - Anaemia [Fatal]
